FAERS Safety Report 13693467 (Version 4)
Quarter: 2019Q3

REPORT INFORMATION
  Report Type: Report from Study
  Country: US (occurrence: US)
  Receive Date: 20170627
  Receipt Date: 20190918
  Transmission Date: 20191004
  Serious: Yes (Other)
  Sender: FDA-Public Use
  Company Number: PHEH2017US019140

PATIENT
  Sex: Female

DRUGS (1)
  1. PATADAY [Suspect]
     Active Substance: OLOPATADINE HYDROCHLORIDE
     Indication: PRODUCT USED FOR UNKNOWN INDICATION
     Route: 065

REACTIONS (11)
  - Decreased immune responsiveness [Unknown]
  - Eye pruritus [Unknown]
  - Lung infection [Unknown]
  - Foreign body sensation in eyes [Unknown]
  - Eye infection [Unknown]
  - Malaise [Unknown]
  - Exposure to mould [Unknown]
  - Cough [Unknown]
  - Conjunctivitis allergic [Unknown]
  - Dry eye [Unknown]
  - Eye allergy [Unknown]
